FAERS Safety Report 26216244 (Version 1)
Quarter: 2025Q4

REPORT INFORMATION
  Report Type: Spontaneous
  Country: CH (occurrence: CH)
  Receive Date: 20251231
  Receipt Date: 20251231
  Transmission Date: 20260118
  Serious: Yes (Other)
  Sender: TEVA
  Company Number: CH-TEVA-VS-3407350

PATIENT
  Age: 3 Year

DRUGS (1)
  1. PREGABALIN [Suspect]
     Active Substance: PREGABALIN
     Indication: Product used for unknown indication
     Route: 048

REACTIONS (3)
  - Overdose [Unknown]
  - Sopor [Unknown]
  - Off label use [Unknown]
